FAERS Safety Report 9650419 (Version 4)
Quarter: 2013Q4

REPORT INFORMATION
  Report Type: Spontaneous
  Country: BE (occurrence: BE)
  Receive Date: 20131028
  Receipt Date: 20131219
  Transmission Date: 20140711
  Serious: Yes (Other)
  Sender: FDA-Public Use
  Company Number: BE-MERCK-1302BEL001572

PATIENT
  Age: 53 Year
  Sex: Male

DRUGS (7)
  1. PEGINTRON [Suspect]
     Indication: HEPATITIS C
     Dosage: TOTAL DAILY DOSE:120MCG/0.5 ML, QW
     Dates: start: 20130114, end: 20130127
  2. PEGINTRON [Suspect]
     Dosage: TOTAL DAILY DOSE:120 MCG/0.4 ML, QW
     Dates: start: 20130128, end: 20130414
  3. PEGINTRON [Suspect]
     Dosage: 120 MCG/0.3 ML, QW
     Dates: start: 20130415, end: 20130701
  4. PEGINTRON [Suspect]
     Dosage: 4 INJECTIONS OF 80 MICROGRAM  0.3 MI
     Dates: start: 20130715, end: 20130720
  5. PEGINTRON [Suspect]
     Dosage: 120 MICROGRAM 0.3 ML
     Dates: start: 20130812, end: 20131208
  6. REBETOL [Suspect]
     Indication: HEPATITIS C
     Dosage: DAILY DOSE : 1000 MG, (FREQUENCY: BID)
     Route: 048
     Dates: start: 20130114, end: 20131208
  7. VICTRELIS [Suspect]
     Indication: HEPATITIS C
     Dosage: TOTAL DAILY DOSE: 2400 MG, (FREQUENCY: TID)
     Route: 048
     Dates: start: 20130212, end: 20131208

REACTIONS (27)
  - Aphonia [Unknown]
  - Skin mass [Unknown]
  - Muscle rigidity [Unknown]
  - Pain in extremity [Not Recovered/Not Resolved]
  - Cheilitis [Recovered/Resolved]
  - Affective disorder [Unknown]
  - Local swelling [Recovering/Resolving]
  - Hypoaesthesia [Recovering/Resolving]
  - Eye disorder [Unknown]
  - Pollakiuria [Unknown]
  - Red blood cell count decreased [Not Recovered/Not Resolved]
  - Urinary tract infection [Not Recovered/Not Resolved]
  - Erythema [Recovering/Resolving]
  - Feeling hot [Recovering/Resolving]
  - Platelet count decreased [Not Recovered/Not Resolved]
  - Rash maculo-papular [Recovering/Resolving]
  - Anaemia [Not Recovered/Not Resolved]
  - Middle insomnia [Unknown]
  - Dyspnoea [Unknown]
  - Fatigue [Not Recovered/Not Resolved]
  - Headache [Not Recovered/Not Resolved]
  - Headache [Unknown]
  - White blood cell count decreased [Unknown]
  - Myalgia [Unknown]
  - Injection site discolouration [Unknown]
  - Injection site erythema [Unknown]
  - Pyrexia [Unknown]
